FAERS Safety Report 25723160 (Version 2)
Quarter: 2025Q4

REPORT INFORMATION
  Report Type: Spontaneous
  Country: US (occurrence: US)
  Receive Date: 20250825
  Receipt Date: 20251003
  Transmission Date: 20260117
  Serious: Yes (Other)
  Sender: OTSUKA
  Company Number: US-MMM-Otsuka-J7CDYZXA

PATIENT
  Sex: Male
  Weight: 86.62 kg

DRUGS (8)
  1. NUEDEXTA [Suspect]
     Active Substance: DEXTROMETHORPHAN HYDROBROMIDE\QUINIDINE SULFATE
     Indication: Dementia
     Dosage: 1 DF (20/10MG), QD (ONCE A DAY IN THE PM)
     Route: 065
  2. NUEDEXTA [Suspect]
     Active Substance: DEXTROMETHORPHAN HYDROBROMIDE\QUINIDINE SULFATE
     Indication: Cerebrovascular accident
     Dosage: 1 DF (20/10MG), BID (TWICE A DAY)
     Route: 065
  3. NUEDEXTA [Suspect]
     Active Substance: DEXTROMETHORPHAN HYDROBROMIDE\QUINIDINE SULFATE
     Indication: Confusional state
  4. NUEDEXTA [Suspect]
     Active Substance: DEXTROMETHORPHAN HYDROBROMIDE\QUINIDINE SULFATE
     Indication: Agitation
  5. MEMANTINE [Concomitant]
     Active Substance: MEMANTINE
     Indication: Product used for unknown indication
     Dosage: 28 MG, BID (ONE IN THE AM AND ONE AT NIGHT)
     Route: 065
  6. MEMANTINE [Concomitant]
     Active Substance: MEMANTINE
     Dosage: 28 MG, QD (EXTENDED RELEASE AT NIGHT)
     Route: 065
  7. WELLBUTRIN [Concomitant]
     Active Substance: BUPROPION HYDROCHLORIDE
     Indication: Anxiety
     Dosage: 300 MG, QD (IN THE AM)
     Route: 065
     Dates: start: 2025
  8. WELLBUTRIN [Concomitant]
     Active Substance: BUPROPION HYDROCHLORIDE
     Indication: Major depression

REACTIONS (4)
  - Carotid artery occlusion [Unknown]
  - Feeling abnormal [Unknown]
  - Poor peripheral circulation [Unknown]
  - Off label use [Unknown]
